FAERS Safety Report 19479832 (Version 1)
Quarter: 2021Q2

REPORT INFORMATION
  Report Type: Spontaneous
  Country: ES (occurrence: ES)
  Receive Date: 20210630
  Receipt Date: 20210630
  Transmission Date: 20210717
  Serious: Yes (Hospitalization, Other)
  Sender: FDA-Public Use
  Company Number: ES-GILEAD-2021-0538634

PATIENT
  Age: 56 Year
  Sex: Female

DRUGS (1)
  1. YESCARTA [Suspect]
     Active Substance: AXICABTAGENE CILOLEUCEL
     Indication: NON-HODGKIN^S LYMPHOMA
     Dosage: YESCARTA 0,4 ? 2 X 10E8 CELULAS DISPERSION PARA PERFUSION 1 BOLSA DE 68 ML
     Route: 065
     Dates: start: 20201222, end: 20201222

REACTIONS (3)
  - Cytokine release syndrome [Recovered/Resolved]
  - Pancytopenia [Recovered/Resolved]
  - Immune effector cell-associated neurotoxicity syndrome [Recovered/Resolved]

NARRATIVE: CASE EVENT DATE: 20201222
